FAERS Safety Report 4960239-3 (Version None)
Quarter: 2006Q1

REPORT INFORMATION
  Report Type: 
  Country: None (occurrence: None)
  Receive Date: 20060328
  Receipt Date: 20060319
  Transmission Date: 20060701
  Serious: Yes (Other)
  Sender: FDA-Public Use
  Company Number: 2006038716

PATIENT
  Age: 53 Year
  Sex: Female
  Weight: 71.6683 kg

DRUGS (5)
  1. GENOTROPIN [Suspect]
     Indication: HYPOPITUITARISM
     Dosage: 0.2 MG (0.2 MG, DAILY), SUBCUTANEOUS
     Route: 058
     Dates: start: 20060101
  2. PAXIL [Concomitant]
  3. WELLBUTRIN [Concomitant]
  4. PRAVACHOL [Concomitant]
  5. ALTACE [Concomitant]

REACTIONS (7)
  - BLOOD GLUCOSE INCREASED [None]
  - HEADACHE [None]
  - HEART RATE INCREASED [None]
  - INCORRECT DOSE ADMINISTERED [None]
  - IRRITABILITY [None]
  - PALPITATIONS [None]
  - WRONG TECHNIQUE IN DRUG USAGE PROCESS [None]
